FAERS Safety Report 24650964 (Version 1)
Quarter: 2024Q4

REPORT INFORMATION
  Report Type: Report from Study
  Country: US (occurrence: US)
  Receive Date: 20241122
  Receipt Date: 20241122
  Transmission Date: 20250115
  Serious: Yes (Other)
  Sender: ALEXION PHARMACEUTICALS
  Company Number: US-AstraZeneca-CH-00749258A

PATIENT
  Weight: 48 kg

DRUGS (4)
  1. SELUMETINIB [Suspect]
     Active Substance: SELUMETINIB
     Indication: Benign neoplasm
     Dosage: 35 MILLIGRAM, BID
  2. SELUMETINIB [Suspect]
     Active Substance: SELUMETINIB
     Dosage: 35 MILLIGRAM, BID
  3. SELUMETINIB [Suspect]
     Active Substance: SELUMETINIB
     Dosage: 35 MILLIGRAM, BID
  4. SELUMETINIB [Suspect]
     Active Substance: SELUMETINIB
     Dosage: 35 MILLIGRAM, BID

REACTIONS (1)
  - Desmoid tumour [Unknown]
